FAERS Safety Report 9238109 (Version 1)
Quarter: 2013Q2

REPORT INFORMATION
  Report Type: Spontaneous
  Country: US (occurrence: None)
  Receive Date: 20130415
  Receipt Date: 20130415
  Transmission Date: 20140414
  Serious: Yes (Hospitalization)
  Sender: FDA-Public Use
  Company Number: US-20130001

PATIENT
  Sex: Male

DRUGS (1)
  1. HEXABRIX [Suspect]
     Dosage: 1 IN 1 D, UNKNOWN
     Dates: start: 20130328, end: 20130328

REACTIONS (1)
  - Loss of consciousness [None]
